FAERS Safety Report 12212824 (Version 1)
Quarter: 2016Q1

REPORT INFORMATION
  Report Type: Spontaneous
  Country: US (occurrence: US)
  Receive Date: 20160328
  Receipt Date: 20160328
  Transmission Date: 20160526
  Serious: No
  Sender: FDA-Public Use
  Company Number: US-LUPIN PHARMACEUTICALS INC.-2016-00980

PATIENT
  Sex: Male
  Weight: 71.28 kg

DRUGS (1)
  1. DOXYCYCLINE CAPSULE [Suspect]
     Active Substance: DOXYCYCLINE
     Indication: ACNE
     Route: 065
     Dates: start: 201504, end: 201508

REACTIONS (1)
  - Drug ineffective [Unknown]
